FAERS Safety Report 7830335-1 (Version None)
Quarter: 2011Q4

REPORT INFORMATION
  Report Type: 
  Country: None (occurrence: None)
  Receive Date: 20111021
  Receipt Date: 20111018
  Transmission Date: 20120403
  Serious: Yes (Death, Life-Threatening, Hospitalization)
  Sender: FDA-Public Use
  Company Number: US-BRISTOL-MYERS SQUIBB COMPANY-15491509

PATIENT
  Age: 70 Year
  Sex: Female

DRUGS (24)
  1. PHENERGAN HCL [Concomitant]
     Indication: NAUSEA
     Dosage: 1 DF = 12.5 MG OR 25 MG
     Route: 048
     Dates: start: 20091218
  2. DETROL LA [Concomitant]
     Indication: HYPERTONIC BLADDER
     Dosage: 24SEP09-24AUG10,30AUG10-ONG
     Route: 048
     Dates: start: 20090924
  3. ENOXAPARIN SODIUM [Suspect]
     Indication: EMBOLISM
  4. ADVAIR DISKUS 100/50 [Concomitant]
     Indication: CHRONIC OBSTRUCTIVE PULMONARY DISEASE
     Route: 055
     Dates: start: 20040820
  5. NIFEDIPINE [Concomitant]
     Indication: HYPERTENSION
     Route: 048
     Dates: start: 20070103
  6. SYNTHROID [Concomitant]
     Indication: HYPOTHYROIDISM
     Route: 048
     Dates: start: 20051122
  7. PROTONIX [Concomitant]
     Indication: GASTROOESOPHAGEAL REFLUX DISEASE
     Dosage: 4APR2003-24AUG10,30AUG10-ONG
     Route: 048
     Dates: start: 20030404
  8. PRILOSEC [Concomitant]
     Indication: GASTROOESOPHAGEAL REFLUX DISEASE
     Route: 048
     Dates: start: 20110111
  9. WARFARIN SODIUM [Suspect]
     Indication: EMBOLISM
     Dosage: RESTARTED ON 27-JAN-2011, RESTARTED OPEN LABEL 6 MG 09-FEB-2011 TO 23-FEB-2011
     Route: 048
     Dates: start: 20100826
  10. METFORMIN HCL [Concomitant]
     Indication: DIABETES MELLITUS
     Route: 048
     Dates: start: 20031112
  11. PREMARIN [Concomitant]
     Indication: MENOPAUSE
     Route: 048
     Dates: start: 20030904
  12. APIXABAN [Suspect]
     Indication: EMBOLISM
     Dosage: RESTARTED ON 27-JAN-2011,
     Route: 048
     Dates: start: 20100826
  13. KLONOPIN [Concomitant]
     Indication: ANXIETY
     Route: 048
     Dates: start: 20090219
  14. PRISTIQ [Concomitant]
     Indication: DEPRESSION
     Route: 048
     Dates: start: 20100801
  15. BLINDED: PLACEBO [Suspect]
     Indication: EMBOLISM
     Dosage: RESTARTED ON 27-JAN-2011
     Route: 048
     Dates: start: 20100826
  16. COUMADIN [Suspect]
     Dates: start: 20110209, end: 20110223
  17. FOLIC ACID [Concomitant]
     Route: 048
     Dates: start: 20090101
  18. ISOSORBIDE DINITRATE [Concomitant]
     Indication: ANGINA PECTORIS
     Route: 048
     Dates: start: 20091218
  19. LOMOTIL [Concomitant]
     Indication: DIARRHOEA
     Route: 048
     Dates: start: 20070801
  20. LOVAZA [Concomitant]
     Indication: DYSLIPIDAEMIA
     Route: 048
     Dates: start: 20090813
  21. DESYREL [Concomitant]
     Indication: DEPRESSION
     Route: 048
     Dates: start: 20090427
  22. MOBIC [Concomitant]
     Indication: OSTEOARTHRITIS
     Dosage: PRN
     Route: 048
     Dates: start: 20050222
  23. NAMENDA [Concomitant]
     Indication: DEMENTIA ALZHEIMER'S TYPE
     Route: 048
     Dates: start: 20100801
  24. POTASSIUM GLUCONATE TAB [Concomitant]
     Indication: MINERAL SUPPLEMENTATION
     Route: 048

REACTIONS (2)
  - PERICARDIAL HAEMORRHAGE [None]
  - INTERNATIONAL NORMALISED RATIO INCREASED [None]
